FAERS Safety Report 9053311 (Version 1)
Quarter: 2013Q1

REPORT INFORMATION
  Report Type: Spontaneous
  Country: GB (occurrence: GB)
  Receive Date: 20130207
  Receipt Date: 20130207
  Transmission Date: 20140127
  Serious: Yes (Hospitalization, Other)
  Sender: FDA-Public Use
  Company Number: GB-B.I. PHARMACEUTICALS,INC./RIDGEFIELD-2013-UK-00163UK

PATIENT
  Age: 77 Year
  Sex: Female

DRUGS (9)
  1. PRADAXA [Suspect]
     Indication: PROPHYLAXIS
     Dosage: 220 MG
     Route: 048
     Dates: start: 20130103, end: 20130117
  2. ADCAL-D3 [Concomitant]
  3. ALLOPURINOL [Concomitant]
  4. AMLODIPINE [Concomitant]
  5. ANAGRELIDE [Concomitant]
  6. CETIRIZINE [Concomitant]
  7. CITALOPRAM [Concomitant]
  8. LANSOPRAZOLE [Concomitant]
  9. RAMIPRIL [Concomitant]

REACTIONS (2)
  - Activated partial thromboplastin time prolonged [Unknown]
  - Epistaxis [Not Recovered/Not Resolved]
